FAERS Safety Report 17010982 (Version 2)
Quarter: 2019Q4

REPORT INFORMATION
  Report Type: Report from Study
  Country: CN (occurrence: CN)
  Receive Date: 20191108
  Receipt Date: 20191113
  Transmission Date: 20200122
  Serious: Yes (Hospitalization)
  Sender: FDA-Public Use
  Company Number: CN-ASTRAZENECA-2019SF57343

PATIENT
  Age: 60 Year
  Sex: Female

DRUGS (1)
  1. BYETTA [Suspect]
     Active Substance: EXENATIDE
     Indication: DIABETES MELLITUS
     Route: 058
     Dates: start: 20190828, end: 20191103

REACTIONS (4)
  - Dizziness [Unknown]
  - Blood glucose increased [Recovering/Resolving]
  - Vomiting [Unknown]
  - Visual impairment [Recovering/Resolving]

NARRATIVE: CASE EVENT DATE: 201908
